FAERS Safety Report 21163934 (Version 1)
Quarter: 2022Q3

REPORT INFORMATION
  Report Type: Spontaneous
  Country: FI (occurrence: FI)
  Receive Date: 20220803
  Receipt Date: 20220803
  Transmission Date: 20221026
  Serious: Yes (Hospitalization)
  Sender: FDA-Public Use
  Company Number: FI-ENDO PHARMACEUTICALS INC-2022-004587

PATIENT
  Age: 19 Year
  Sex: Male

DRUGS (1)
  1. AVEED [Suspect]
     Active Substance: TESTOSTERONE UNDECANOATE
     Indication: Testicular disorder
     Dosage: 1000 MG, (CYCLICAL)
     Route: 065
     Dates: start: 201302, end: 202203

REACTIONS (1)
  - Urethral pain [Recovering/Resolving]

NARRATIVE: CASE EVENT DATE: 20130601
